FAERS Safety Report 17237314 (Version 14)
Quarter: 2020Q4

REPORT INFORMATION
  Report Type: Spontaneous
  Country: US (occurrence: US)
  Receive Date: 20200106
  Receipt Date: 20201216
  Transmission Date: 20210113
  Serious: No
  Sender: FDA-Public Use
  Company Number: US-PFIZER INC-2020001753

PATIENT
  Age: 57 Year
  Sex: Female

DRUGS (7)
  1. XELJANZ [Suspect]
     Active Substance: TOFACITINIB CITRATE
     Indication: LICHEN PLANOPILARIS
     Dosage: 5 MG, UNK (QUANTITY 90 FOR DAYS SUPPLY 30)
  2. XELJANZ [Suspect]
     Active Substance: TOFACITINIB CITRATE
     Dosage: 5 MG, 2X/DAY
  3. XELJANZ [Suspect]
     Active Substance: TOFACITINIB CITRATE
     Dosage: 15 MG, DAILY (I TAKE 15 MG PER DAY)
  4. NALTREXONE [Concomitant]
     Active Substance: NALTREXONE
     Dosage: 10 MG, DAILY, 10 MG, IN THE DAY
  5. XELJANZ [Suspect]
     Active Substance: TOFACITINIB CITRATE
     Dosage: 15 MG, DAILY (3 TABLETS)
  6. NALTREXONE [Concomitant]
     Active Substance: NALTREXONE
     Dosage: 5 MG, IN THE EVENING
  7. XELJANZ [Suspect]
     Active Substance: TOFACITINIB CITRATE
     Indication: ALOPECIA
     Dosage: 15 MG, DAILY (TWO TABLETS IN THE MORNING AND ONE TABLET IN THE EVENING)

REACTIONS (3)
  - Mobility decreased [Unknown]
  - Off label use [Unknown]
  - Condition aggravated [Unknown]
